FAERS Safety Report 8452030-0 (Version None)
Quarter: 2012Q2

REPORT INFORMATION
  Report Type: 
  Country: None (occurrence: None)
  Receive Date: 20120620
  Receipt Date: 20120611
  Transmission Date: 20120825
  Serious: Yes (Other)
  Sender: FDA-Public Use
  Company Number: US-BRISTOL-MYERS SQUIBB COMPANY-16677213

PATIENT
  Age: 67 Year
  Sex: Female
  Weight: 87 kg

DRUGS (3)
  1. RESERPINE [Suspect]
     Indication: TARDIVE DYSKINESIA
  2. ABILIFY [Suspect]
     Indication: DEPRESSION
  3. ATENOLOL [Suspect]

REACTIONS (7)
  - PATELLA FRACTURE [None]
  - CONCUSSION [None]
  - FALL [None]
  - TARDIVE DYSKINESIA [None]
  - PRURITUS [None]
  - HYPOTENSION [None]
  - HUMERUS FRACTURE [None]
